FAERS Safety Report 22039090 (Version 1)
Quarter: 2023Q1

REPORT INFORMATION
  Report Type: Spontaneous
  Country: FR (occurrence: None)
  Receive Date: 20230227
  Receipt Date: 20230227
  Transmission Date: 20230418
  Serious: Yes (Life-Threatening)
  Sender: FDA-Public Use
  Company Number: FR-ROCHE-3292331

PATIENT
  Age: 68 Year
  Sex: Female
  Weight: 69 kg

DRUGS (3)
  1. XELODA [Suspect]
     Active Substance: CAPECITABINE
     Indication: Anal squamous cell carcinoma
     Route: 065
     Dates: start: 202208, end: 202208
  2. MITOMYCIN [Suspect]
     Active Substance: MITOMYCIN
     Indication: Anal squamous cell carcinoma
     Route: 042
     Dates: start: 20220802, end: 20220802
  3. MITOMYCIN [Suspect]
     Active Substance: MITOMYCIN
     Route: 042
     Dates: start: 20220829, end: 20220829

REACTIONS (2)
  - Pulmonary arterial hypertension [Recovered/Resolved with Sequelae]
  - Pulmonary veno-occlusive disease [Recovered/Resolved with Sequelae]

NARRATIVE: CASE EVENT DATE: 20221201
